FAERS Safety Report 5145720-9 (Version None)
Quarter: 2006Q4

REPORT INFORMATION
  Report Type: 
  Country: None (occurrence: None)
  Receive Date: 20060915
  Receipt Date: 20051222
  Transmission Date: 20070319
  Serious: Yes (Other)
  Sender: FDA-Public Use
  Company Number: S05-USA-05281-01

PATIENT

DRUGS (2)
  1. CELEXA [Suspect]
     Dosage: 40 MG QD PO
     Route: 048
  2. ABILIFY [Concomitant]

REACTIONS (1)
  - ELECTROCARDIOGRAM QT CORRECTED INTERVAL PROLONGED [None]
